FAERS Safety Report 6847616-0 (Version None)
Quarter: 2010Q3

REPORT INFORMATION
  Report Type: 
  Country: None (occurrence: None)
  Receive Date: 20100716
  Receipt Date: 20100702
  Transmission Date: 20110219
  Serious: Yes (Hospitalization, Other)
  Sender: FDA-Public Use
  Company Number: PHHY2010DE44624

PATIENT
  Sex: Male
  Weight: 93 kg

DRUGS (8)
  1. ALISKIREN ALI+ [Suspect]
     Indication: HYPERTENSION
     Dosage: 300 MG/D
     Dates: start: 20081024, end: 20090301
  2. HYDROCHLOROTHIAZIDE [Suspect]
     Dosage: 25 MG/D
     Dates: start: 20081019
  3. RAMIPRIL [Concomitant]
     Dosage: 5 MG/D
     Dates: start: 20081019
  4. ANGIOTENSIN II ANTAGONISTS [Concomitant]
  5. ANTIHYPERTENSIVES [Concomitant]
  6. AMLODIPINE [Concomitant]
     Dosage: 10 MG/D
     Dates: start: 20081019
  7. MOXONIDINE [Concomitant]
     Dosage: 0.4 MG/D
     Dates: start: 20081019
  8. NEBIVOLOL [Concomitant]
     Dosage: 5 MG/D
     Dates: start: 20081019

REACTIONS (3)
  - BLOOD PRESSURE INCREASED [None]
  - HYPERTENSIVE CRISIS [None]
  - LEFT VENTRICULAR HYPERTROPHY [None]
